FAERS Safety Report 7250016-5 (Version None)
Quarter: 2011Q1

REPORT INFORMATION
  Report Type: 
  Country: None (occurrence: None)
  Receive Date: 20110118
  Receipt Date: 20110112
  Transmission Date: 20110831
  Serious: Yes (Life-Threatening)
  Sender: FDA-Public Use
  Company Number: 2010SP063866

PATIENT
  Age: 26 Year
  Sex: Female

DRUGS (7)
  1. SERTRALINE [Concomitant]
  2. BROTIZOLAM [Concomitant]
  3. REFLEX (MIRTAZAPINE /01293201/) [Suspect]
     Indication: DEPRESSION
     Dosage: 15 MG;QD;PO
     Route: 048
     Dates: start: 20101019, end: 20101025
  4. SODIUM AUZULENE [Concomitant]
  5. SULFONATE [Concomitant]
  6. SULPIRIDE [Concomitant]
  7. HYDROCHLORIDE [Concomitant]

REACTIONS (10)
  - IRRITABILITY [None]
  - SUICIDAL IDEATION [None]
  - THINKING ABNORMAL [None]
  - ABNORMAL BEHAVIOUR [None]
  - SEDATION [None]
  - AGITATION [None]
  - ANXIETY [None]
  - DEPRESSION [None]
  - CONFUSIONAL STATE [None]
  - HYPERPHAGIA [None]
